FAERS Safety Report 10047397 (Version 2)
Quarter: 2014Q1

REPORT INFORMATION
  Report Type: Spontaneous
  Country: NZ (occurrence: NZ)
  Receive Date: 20140331
  Receipt Date: 20140331
  Transmission Date: 20141002
  Serious: Yes (Hospitalization, Other)
  Sender: FDA-Public Use
  Company Number: NZ-BAYER-2014-038778

PATIENT
  Age: 57 Year
  Sex: Male

DRUGS (2)
  1. REGORAFENIB [Suspect]
     Dosage: 160 MG, QD
     Route: 048
     Dates: start: 20140215, end: 20140307
  2. REGORAFENIB [Suspect]
     Dosage: UNK
     Route: 048
     Dates: start: 201403

REACTIONS (2)
  - Bacterial sepsis [Recovered/Resolved]
  - Pyrexia [Recovered/Resolved]
